FAERS Safety Report 9137892 (Version 2)
Quarter: 2013Q3

REPORT INFORMATION
  Report Type: Spontaneous
  Country: US (occurrence: US)
  Receive Date: 20130304
  Receipt Date: 20130702
  Transmission Date: 20140515
  Serious: Yes (Other)
  Sender: FDA-Public Use
  Company Number: US-ELI_LILLY_AND_COMPANY-US201302009299

PATIENT
  Age: 85 Year
  Sex: Female

DRUGS (9)
  1. EVISTA [Suspect]
     Indication: OSTEOPOROSIS
     Dosage: 60 MG, UNK
     Dates: end: 201111
  2. LISINOPRIL [Concomitant]
  3. ADALATE [Concomitant]
  4. PRAVACOL [Concomitant]
  5. ZETIA [Concomitant]
  6. HYDROCHLOROTHIAZIDE [Concomitant]
  7. OCUVITE [Concomitant]
  8. POTASSIUM [Concomitant]
  9. CALCIUM [Concomitant]

REACTIONS (3)
  - Hip fracture [Unknown]
  - Fall [Unknown]
  - Mobility decreased [Unknown]
